FAERS Safety Report 9685055 (Version 2)
Quarter: 2013Q4

REPORT INFORMATION
  Report Type: Spontaneous
  Country: TW (occurrence: TW)
  Receive Date: 20131113
  Receipt Date: 20131113
  Transmission Date: 20140711
  Serious: Yes (Hospitalization, Other)
  Sender: FDA-Public Use
  Company Number: TW-AMGEN-TWNSP2013071632

PATIENT
  Age: 65 Year
  Sex: Female

DRUGS (6)
  1. ENBREL [Suspect]
     Indication: RHEUMATOID ARTHRITIS
     Dosage: 25 MG, WEEKLY
     Route: 058
     Dates: start: 20120413, end: 20130925
  2. PREDNISOLONE [Concomitant]
     Dosage: 5 MG, 1X/DAY
  3. DEFENSE [Concomitant]
     Dosage: 400 MG, 1X/DAY
  4. MTX                                /00113801/ [Concomitant]
     Dosage: 12.5 MG, WEEKLY
  5. FOLIC ACID [Concomitant]
     Dosage: 5 MG, ALTERNATE DAY
  6. LONINE [Concomitant]
     Dosage: 200 MG, 1X/DAY

REACTIONS (5)
  - Liver disorder [Unknown]
  - Renal cyst [Unknown]
  - Urosepsis [Unknown]
  - Escherichia bacteraemia [Unknown]
  - Bronchitis [Unknown]
